FAERS Safety Report 25865734 (Version 6)
Quarter: 2025Q4

REPORT INFORMATION
  Report Type: Spontaneous
  Country: US (occurrence: US)
  Receive Date: 20250930
  Receipt Date: 20251030
  Transmission Date: 20260118
  Serious: Yes (Other)
  Sender: ROCHE
  Company Number: US-ROCHE-10000389617

PATIENT
  Sex: Male

DRUGS (2)
  1. XOLAIR [Suspect]
     Active Substance: OMALIZUMAB
     Indication: Product used for unknown indication
     Dosage: MORE DOSAGE INFORMATION: 300MG AUTOINJECTOR WITH 150MG AUTOINJECTOR
     Route: 058
  2. XOLAIR [Suspect]
     Active Substance: OMALIZUMAB
     Dosage: MORE DOSAGE INFORMATION: 150MG AUTOINJECTOR WITH 300MG AUTOINJECTOR
     Route: 058

REACTIONS (4)
  - Underdose [Unknown]
  - Device defective [Unknown]
  - No adverse event [Unknown]
  - Device breakage [Unknown]

NARRATIVE: CASE EVENT DATE: 20250914
